FAERS Safety Report 9100283 (Version 1)
Quarter: 2013Q1

REPORT INFORMATION
  Report Type: Spontaneous
  Country: US (occurrence: US)
  Receive Date: 20130215
  Receipt Date: 20130215
  Transmission Date: 20140127
  Serious: Yes (Hospitalization)
  Sender: FDA-Public Use
  Company Number: US-PFIZER INC-2013059321

PATIENT
  Age: 71 Year
  Sex: Female
  Weight: 90.7 kg

DRUGS (9)
  1. LYRICA [Suspect]
     Indication: NEUROPATHY PERIPHERAL
     Dosage: 150 MG, 3X/DAY
     Route: 048
     Dates: start: 2008
  2. LYRICA [Suspect]
     Indication: NEUROPATHY PERIPHERAL
  3. TRAZODONE [Concomitant]
     Indication: POSTOPERATIVE CARE
     Dosage: 50 MG, UNK
  4. ANASTROZOLE [Concomitant]
     Indication: POSTOPERATIVE CARE
     Dosage: 1 MG, UNK
  5. CITALOPRAM [Concomitant]
     Indication: POSTOPERATIVE CARE
     Dosage: 40 MG, UNK
  6. OMEPRAZOLE [Concomitant]
     Indication: GASTROOESOPHAGEAL REFLUX DISEASE
     Dosage: 40 MG, UNK
  7. KLOR-CON [Concomitant]
     Dosage: 40 MG, UNK
  8. AMLODIPINE [Concomitant]
     Indication: HYPERTENSION
     Dosage: 10 MG, UNK
  9. GLIPIZIDE [Concomitant]
     Indication: DIABETES MELLITUS
     Dosage: 5 MG, UNK

REACTIONS (1)
  - Intestinal obstruction [Recovered/Resolved]
